FAERS Safety Report 6251806-8 (Version None)
Quarter: 2009Q2

REPORT INFORMATION
  Report Type: 
  Country: None (occurrence: None)
  Receive Date: 20090629
  Receipt Date: 20090323
  Transmission Date: 20091009
  Serious: Yes (Hospitalization)
  Sender: FDA-Public Use
  Company Number: 623867

PATIENT
  Age: 48 Year
  Sex: Male

DRUGS (14)
  1. CAPECITABINE [Suspect]
     Indication: COLON CANCER METASTATIC
  2. BEVACIZUMAB (BEVACIZUMAB) [Suspect]
     Indication: COLON CANCER METASTATIC
  3. CETUXIMAB (CETUXIMAB) [Suspect]
     Indication: COLON CANCER METASTATIC
     Dosage: 500 MG INTRAVENOUS
     Route: 042
  4. PANITUMUMAB (PANITUMUMAB) [Suspect]
     Indication: COLON CANCER METASTATIC
     Dosage: 600 MG INTRAVENOUS
     Route: 042
  5. FLUOROURACIL [Concomitant]
  6. LEUCOVORIN CALCIUM [Concomitant]
  7. IRINOTECAN HCL [Concomitant]
  8. OXALIPLATIN [Concomitant]
  9. DIPHENHYDRAMINE HCL [Concomitant]
  10. GRANISETRON  HCL [Concomitant]
  11. ACETAMINOPHEN [Concomitant]
  12. DEXAMETHASONE TAB [Concomitant]
  13. CIMETIDINE [Concomitant]
  14. METHYLPREDNISOLONE [Concomitant]

REACTIONS (7)
  - COUGH [None]
  - DISEASE PROGRESSION [None]
  - DYSPNOEA [None]
  - INFUSION RELATED REACTION [None]
  - PALMAR-PLANTAR ERYTHRODYSAESTHESIA SYNDROME [None]
  - RASH [None]
  - TOTAL LUNG CAPACITY DECREASED [None]
